FAERS Safety Report 6726825-5 (Version None)
Quarter: 2010Q2

REPORT INFORMATION
  Report Type: 
  Country: None (occurrence: None)
  Receive Date: 20100516
  Receipt Date: 20100507
  Transmission Date: 20101027
  Serious: Yes (Other)
  Sender: FDA-Public Use
  Company Number: US-JNJFOC-20100503332

PATIENT
  Age: 2 Year
  Sex: Female
  Weight: 10.89 kg

DRUGS (4)
  1. CHILDREN'S MOTRIN [Suspect]
     Indication: NASOPHARYNGITIS
     Route: 048
  2. CHILDREN'S MOTRIN [Suspect]
     Indication: PYREXIA
     Route: 048
  3. CAPTOPRIL [Concomitant]
     Indication: CARDIOMEGALY
     Route: 048
  4. PROPRANOLOL [Concomitant]
     Indication: CARDIOMEGALY
     Route: 048

REACTIONS (4)
  - CONVULSION [None]
  - LETHARGY [None]
  - PRODUCT QUALITY ISSUE [None]
  - UNRESPONSIVE TO STIMULI [None]
